FAERS Safety Report 22162857 (Version 3)
Quarter: 2023Q2

REPORT INFORMATION
  Report Type: Report from Study
  Country: US (occurrence: US)
  Receive Date: 20230331
  Receipt Date: 20230630
  Transmission Date: 20230721
  Serious: Yes (Other)
  Sender: FDA-Public Use
  Company Number: US-JAZZ PHARMACEUTICALS-2023-US-007278

PATIENT
  Sex: Male

DRUGS (10)
  1. EPIDIOLEX [Suspect]
     Active Substance: CANNABIDIOL
     Indication: Epilepsy
     Dosage: 10 MILLILITER
     Dates: start: 202008
  2. EPIDIOLEX [Suspect]
     Active Substance: CANNABIDIOL
     Indication: Lennox-Gastaut syndrome
     Dosage: 1 MILLILITER
  3. EPIDIOLEX [Suspect]
     Active Substance: CANNABIDIOL
     Dosage: 8 MILLILITER, BID
     Route: 048
     Dates: start: 202303
  4. EPIDIOLEX [Suspect]
     Active Substance: CANNABIDIOL
     Dosage: WEEK 3-4: 7ML TWICE DAILY
  5. EPIDIOLEX [Suspect]
     Active Substance: CANNABIDIOL
     Dosage: WEEK 5-6: 6ML TWICE DAILY
  6. EPIDIOLEX [Suspect]
     Active Substance: CANNABIDIOL
     Dosage: WEEK 7-8: 5ML TWICE DAILY
  7. EPIDIOLEX [Suspect]
     Active Substance: CANNABIDIOL
     Dosage: WEEK 9-10: 4ML TWICE DAILY
  8. EPIDIOLEX [Suspect]
     Active Substance: CANNABIDIOL
     Dosage: WEEK 11-12: 3ML TWICE DAILY
  9. EPIDIOLEX [Suspect]
     Active Substance: CANNABIDIOL
     Dosage: WEEK 13-14: 2ML TWICE DAILY WEEK
  10. EPIDIOLEX [Suspect]
     Active Substance: CANNABIDIOL
     Dosage: WEEK 15-16: 1ML TWICE DAILY THEN STOP

REACTIONS (2)
  - Liver injury [Unknown]
  - Drug intolerance [Unknown]
